FAERS Safety Report 7559859-1 (Version None)
Quarter: 2011Q2

REPORT INFORMATION
  Report Type: 
  Country: None (occurrence: None)
  Receive Date: 20110609
  Receipt Date: 20110531
  Transmission Date: 20111010
  Serious: Yes (Hospitalization)
  Sender: FDA-Public Use
  Company Number: AEUSA201100142

PATIENT
  Age: 72 Year
  Sex: Female
  Weight: 84 kg

DRUGS (22)
  1. GAMUNEX [Suspect]
     Indication: CHRONIC INFLAMMATORY DEMYELINATING POLYRADICULONEUROPATHY
     Dosage: 33.3 GM; QD; IV
     Route: 042
     Dates: start: 20110502, end: 20110503
  2. LOPRESSOR [Concomitant]
  3. CALCIUM W/MAGNESIUM [Concomitant]
  4. GLUCOSAMINE W/METHYLSULFONYLMETHANE [Concomitant]
  5. MIRALAX [Concomitant]
  6. MICARDIS [Concomitant]
  7. LOVAZA [Concomitant]
  8. POTASSIUM CHLORIDE [Concomitant]
  9. PLAVIX /01220801/ [Concomitant]
  10. CLARITIN /00917501/ [Concomitant]
  11. ACIDOPHILUS [Concomitant]
  12. METHOTREXATE [Concomitant]
  13. ACETAMINOPHEN [Concomitant]
  14. LEVOTHYROXINE SODIUM [Concomitant]
  15. RESTASIS [Concomitant]
  16. TYLENOL WITH CODEIN #3 [Concomitant]
  17. FOLIC ACID [Concomitant]
  18. PREDNISONE [Concomitant]
  19. PATANOL [Concomitant]
  20. BENADRYL /000040202/ [Concomitant]
  21. NIFEDIPINE [Concomitant]
  22. FLONASE [Concomitant]

REACTIONS (1)
  - PULMONARY EMBOLISM [None]
